FAERS Safety Report 9842013 (Version 2)
Quarter: 2014Q1

REPORT INFORMATION
  Report Type: Report from Study
  Country: US (occurrence: US)
  Receive Date: 20140124
  Receipt Date: 20140124
  Transmission Date: 20141002
  Serious: Yes (Other)
  Sender: FDA-Public Use
  Company Number: US-BAXTER-2012BAX024211

PATIENT
  Age: 68 Year
  Sex: 0

DRUGS (3)
  1. CYTOXAN? (CYCLOPHOSPHAMIDE FOR INJECTION, USP) [Suspect]
     Indication: CHRONIC LYMPHOCYTIC LEUKAEMIA
     Route: 042
     Dates: start: 20110221, end: 20110221
  2. RITOXAN [Suspect]
     Indication: CHRONIC LYMPHOCYTIC LEUKAEMIA
     Route: 042
     Dates: start: 20110221, end: 20110221
  3. FLUDARA [Suspect]
     Indication: CHRONIC LYMPHOCYTIC LEUKAEMIA
     Route: 042
     Dates: start: 20110221, end: 20110221

REACTIONS (1)
  - Pyrexia [Unknown]
